FAERS Safety Report 16767335 (Version 1)
Quarter: 2019Q4

REPORT INFORMATION
  Report Type: Spontaneous
  Country: US (occurrence: US)
  Receive Date: 20190903
  Receipt Date: 20190903
  Transmission Date: 20200122
  Serious: Yes (Other)
  Sender: FDA-Public Use
  Company Number: None

PATIENT
  Age: 18 Year
  Sex: Male

DRUGS (1)
  1. AIMOVIG [Suspect]
     Active Substance: ERENUMAB-AOOE
     Indication: MIGRAINE
     Dates: start: 20190802

REACTIONS (5)
  - Gastric disorder [None]
  - Fatigue [None]
  - Dizziness [None]
  - Hot flush [None]
  - Somnolence [None]

NARRATIVE: CASE EVENT DATE: 20190830
